FAERS Safety Report 7655912-2 (Version None)
Quarter: 2011Q3

REPORT INFORMATION
  Report Type: 
  Country: None (occurrence: None)
  Receive Date: 20110804
  Receipt Date: 20110804
  Transmission Date: 20111222
  Serious: Yes (Hospitalization)
  Sender: FDA-Public Use
  Company Number: None

PATIENT
  Age: 62 Year
  Sex: Female
  Weight: 55 kg

DRUGS (4)
  1. IBANDRONATE [Concomitant]
  2. METHOTREXATE [Suspect]
     Indication: POLYARTHRITIS
     Dosage: 12.5 MG
     Route: 048
     Dates: start: 20110303, end: 20110504
  3. ETANERCEPT [Concomitant]
     Dosage: 25 MG
     Route: 058
     Dates: start: 20110410, end: 20110514
  4. PREDNISONE [Concomitant]
     Route: 048

REACTIONS (5)
  - HEPATITIS B [None]
  - HEPATIC FAILURE [None]
  - ARTHRITIS [None]
  - HEPATITIS [None]
  - CONDITION AGGRAVATED [None]
